FAERS Safety Report 8800220 (Version 4)
Quarter: 2015Q2

REPORT INFORMATION
  Report Type: Report from Study
  Country: US (occurrence: US)
  Receive Date: 20120921
  Receipt Date: 20150624
  Transmission Date: 20150821
  Serious: Yes (Death, Hospitalization)
  Sender: FDA-Public Use
  Company Number: US-ROCHE-1124568

PATIENT
  Age: 57 Year
  Sex: Male

DRUGS (13)
  1. AVASTIN [Suspect]
     Active Substance: BEVACIZUMAB
     Indication: LUNG NEOPLASM MALIGNANT
     Route: 042
  2. ATIVAN [Concomitant]
     Active Substance: LORAZEPAM
     Dosage: Q 4 HR
     Route: 065
  3. CODEINE [Concomitant]
     Active Substance: CODEINE
  4. MORPHINE [Concomitant]
     Active Substance: MORPHINE
     Dosage: PRN
     Route: 065
  5. TEMODAR [Concomitant]
     Active Substance: TEMOZOLOMIDE
     Route: 065
  6. MARINOL (UNITED STATES) [Concomitant]
     Route: 065
  7. PHENERGAN [Concomitant]
     Active Substance: PROMETHAZINE HYDROCHLORIDE
  8. AVASTIN [Suspect]
     Active Substance: BEVACIZUMAB
     Dosage: ONE TIME DOSE
     Route: 065
  9. LOVENOX [Concomitant]
     Active Substance: ENOXAPARIN SODIUM
     Route: 058
  10. PRILOSEC [Concomitant]
     Active Substance: OMEPRAZOLE MAGNESIUM
  11. MORPHINE [Concomitant]
     Active Substance: MORPHINE
     Dosage: PRN
     Route: 065
  12. MOXIFLOXACIN [Concomitant]
     Active Substance: MOXIFLOXACIN
  13. REGLAN [Concomitant]
     Active Substance: METOCLOPRAMIDE HYDROCHLORIDE
     Route: 065

REACTIONS (9)
  - Off label use [Unknown]
  - Ill-defined disorder [Unknown]
  - Pneumonia [Unknown]
  - Chest pain [Unknown]
  - Pleural effusion [Unknown]
  - Disease progression [Unknown]
  - Death [Fatal]
  - Musculoskeletal chest pain [Unknown]
  - Pleuritic pain [Unknown]

NARRATIVE: CASE EVENT DATE: 200601
